FAERS Safety Report 7090355-4 (Version None)
Quarter: 2010Q4

REPORT INFORMATION
  Report Type: 
  Country: None (occurrence: None)
  Receive Date: 20101109
  Receipt Date: 20101025
  Transmission Date: 20110411
  Serious: Yes (Other)
  Sender: FDA-Public Use
  Company Number: PHHY2010IT73953

PATIENT
  Sex: Female

DRUGS (2)
  1. DEFEROXAMINE MESYLATE [Suspect]
  2. TRANSFUSIONS [Concomitant]

REACTIONS (5)
  - BONE MARROW TRANSPLANT [None]
  - CAESAREAN SECTION [None]
  - DRUG EXPOSURE DURING PREGNANCY [None]
  - DRUG HYPERSENSITIVITY [None]
  - NORMAL NEWBORN [None]
